FAERS Safety Report 6768496-8 (Version None)
Quarter: 2010Q2

REPORT INFORMATION
  Report Type: 
  Country: None (occurrence: None)
  Receive Date: 20100614
  Receipt Date: 20100603
  Transmission Date: 20101027
  Serious: Yes (Death)
  Sender: FDA-Public Use
  Company Number: US-PFIZER INC-2009316381

PATIENT
  Sex: Male

DRUGS (4)
  1. SUTENT [Suspect]
     Indication: RENAL CELL CARCINOMA
     Dosage: 50 MG, UNK
     Route: 048
     Dates: start: 20090218, end: 20091225
  2. HYDROCODONE [Concomitant]
  3. PHENERGAN ^AVENTIS PHARMA^ [Concomitant]
  4. AMBIEN [Concomitant]

REACTIONS (1)
  - DEATH [None]
